FAERS Safety Report 10229428 (Version 1)
Quarter: 2014Q2

REPORT INFORMATION
  Report Type: Spontaneous
  Country: US (occurrence: None)
  Receive Date: 20140513
  Receipt Date: 20140513
  Transmission Date: 20141212
  Serious: Yes (Hospitalization, Other)
  Sender: FDA-Public Use
  Company Number: SYM-2014-16363

PATIENT
  Age: 16 Year
  Sex: Male

DRUGS (3)
  1. EFFEXOR [Suspect]
     Indication: CATAPLEXY
     Dosage: 50 MG, 1 IN 1 D, ORAL
     Route: 048
     Dates: start: 201309, end: 201401
  2. XYREM [Suspect]
     Indication: NARCOLEPSY
     Dosage: 2.25 GM, 2 IN 1 D, ORAL
     Route: 048
     Dates: start: 20130927, end: 2013
  3. XYREM [Suspect]
     Indication: SOMNOLENCE
     Dosage: 2.25 GM, 2 IN 1 D, ORAL
     Route: 048
     Dates: start: 20130927, end: 2013

REACTIONS (5)
  - Depression [None]
  - Anxiety [None]
  - Constipation [None]
  - Decreased appetite [None]
  - Weight decreased [None]
